FAERS Safety Report 4848740-4 (Version None)
Quarter: 2005Q4

REPORT INFORMATION
  Report Type: 
  Country: None (occurrence: None)
  Receive Date: 20051206
  Receipt Date: 20051118
  Transmission Date: 20060501
  Serious: Yes (Other)
  Sender: FDA-Public Use
  Company Number: JP_051108113

PATIENT
  Age: 75 Year
  Sex: Female
  Weight: 43.6 kg

DRUGS (5)
  1. EVISTA [Suspect]
     Indication: OSTEOPOROSIS POSTMENOPAUSAL
     Dosage: SEE IMAGE
     Route: 048
     Dates: start: 20050803, end: 20050926
  2. EVISTA [Suspect]
     Indication: OSTEOPOROSIS POSTMENOPAUSAL
     Dosage: SEE IMAGE
     Route: 048
     Dates: start: 20051012, end: 20051018
  3. AFAROL (ALFACALCIDOL) [Concomitant]
  4. NITRAZEPAM [Concomitant]
  5. ALOSENN (ACHILLEA, RUBIA ROOT TINCTURE, SENNA FRUIT, SENNA LEAF, TARAX [Concomitant]

REACTIONS (4)
  - ANOREXIA [None]
  - DYSPEPSIA [None]
  - ERUCTATION [None]
  - STOMATITIS [None]
